FAERS Safety Report 8886780 (Version 1)
Quarter: 2012Q4

REPORT INFORMATION
  Report Type: 
  Country: US (occurrence: US)
  Receive Date: 20121105
  Receipt Date: 20121105
  Transmission Date: 20130627
  Serious: Yes (Hospitalization, Disabling, Other)
  Sender: FDA-Public Use
  Company Number: US-009507513-0805USA01248

PATIENT

DRUGS (3)
  1. FOSAMAX [Suspect]
     Indication: OSTEOPOROSIS
     Dosage: 70 mg, UNK
     Route: 048
     Dates: start: 20030613, end: 20060623
  2. BENICAR [Concomitant]
     Indication: HYPERTENSION
     Dates: start: 1980
  3. SIMVASTATIN [Concomitant]
     Indication: BLOOD CHOLESTEROL INCREASED
     Dates: start: 1995

REACTIONS (15)
  - Osteoarthritis [Unknown]
  - Adverse event [Unknown]
  - Atrial fibrillation [Unknown]
  - Osteonecrosis of jaw [Not Recovered/Not Resolved]
  - Osteomyelitis [Not Recovered/Not Resolved]
  - Fall [Unknown]
  - Traumatic fracture [Unknown]
  - Infection [Unknown]
  - Cystocele [Unknown]
  - Post procedural haemorrhage [Recovered/Resolved]
  - Benign neoplasm [Unknown]
  - Actinic keratosis [Unknown]
  - Coagulopathy [Unknown]
  - Seasonal allergy [Unknown]
  - Cellulitis [Recovering/Resolving]
